FAERS Safety Report 18460323 (Version 1)
Quarter: 2020Q4

REPORT INFORMATION
  Report Type: Spontaneous
  Country: CN (occurrence: CN)
  Receive Date: 20201103
  Receipt Date: 20201103
  Transmission Date: 20210114
  Serious: Yes (Other)
  Sender: FDA-Public Use
  Company Number: CN-BAXTER-2020BAX022050

PATIENT
  Age: 37 Year
  Sex: Female
  Weight: 52 kg

DRUGS (4)
  1. 0.9% SODIUM CHLORIDE INJECTION [Suspect]
     Active Substance: SODIUM CHLORIDE
     Dosage: SODIUM CHLORIDE + ENDOXAN, DOSE RE-INTRODUCED
     Route: 041
     Dates: start: 202010
  2. ENDOXAN [Suspect]
     Active Substance: CYCLOPHOSPHAMIDE
     Dosage: ENDOXAN + 0.9% SODIUM CHLORIDE, DOSE RE-INTRODUCED
     Route: 041
     Dates: start: 202010
  3. ENDOXAN [Suspect]
     Active Substance: CYCLOPHOSPHAMIDE
     Indication: CHRONIC MYELOMONOCYTIC LEUKAEMIA
     Dosage: ENDOXAN (HIGH DOSE) + 0.9% SODIUM CHLORIDE (250 ML)
     Route: 041
     Dates: start: 20201007, end: 20201008
  4. 0.9% SODIUM CHLORIDE INJECTION [Suspect]
     Active Substance: SODIUM CHLORIDE
     Indication: MEDICATION DILUTION
     Dosage: SODIUM CHLORIDE + ENDOXAN (3180 MG) (HIGH DOSE)
     Route: 041
     Dates: start: 20201007, end: 20201008

REACTIONS (6)
  - Burning sensation [Unknown]
  - Chest pain [Recovering/Resolving]
  - Throat irritation [Unknown]
  - Hypoaesthesia oral [Unknown]
  - Abdominal discomfort [Unknown]
  - Abdominal pain upper [Recovering/Resolving]

NARRATIVE: CASE EVENT DATE: 20201007
